FAERS Safety Report 4913603-2 (Version None)
Quarter: 2006Q1

REPORT INFORMATION
  Report Type: 
  Country: None (occurrence: None)
  Receive Date: 20060214
  Receipt Date: 20060214
  Transmission Date: 20060701
  Serious: Yes (Hospitalization)
  Sender: FDA-Public Use
  Company Number: None

PATIENT
  Sex: Female
  Weight: 66 kg

DRUGS (14)
  1. ROCEPHIN [Suspect]
     Indication: PNEUMONIA
     Dosage: 1 GRAM DAILY IV [1 DOSE]
     Route: 042
  2. FLONASE [Concomitant]
  3. ADVAIR DISKUS 100/50 [Concomitant]
  4. GABAPENTIN [Concomitant]
  5. GUAIFENESIN/CODEINE [Concomitant]
  6. HEPARIN [Concomitant]
  7. HYDROCHLOROTHIAZIDE [Concomitant]
  8. HYOSCYAMINE SULFATE [Concomitant]
  9. LEVOTHYROXINE SODIUM [Concomitant]
  10. NITROFURANTOIN [Concomitant]
  11. PROTONIX [Concomitant]
  12. VALSARTAN [Concomitant]
  13. ZOLPIDEM [Concomitant]
  14. METHYLPREDNISOLONE 16MG TAB [Concomitant]

REACTIONS (2)
  - RASH PRURITIC [None]
  - URTICARIA [None]
